FAERS Safety Report 18504541 (Version 1)
Quarter: 2020Q4

REPORT INFORMATION
  Report Type: Spontaneous
  Country: TW (occurrence: TW)
  Receive Date: 20201114
  Receipt Date: 20201114
  Transmission Date: 20210114
  Serious: Yes (Other)
  Sender: FDA-Public Use
  Company Number: NVSC2020TW300481

PATIENT
  Age: 34 Year

DRUGS (4)
  1. RIBOCICLIB. [Suspect]
     Active Substance: RIBOCICLIB
     Dosage: 200 MG (8 MONTHS)
     Route: 065
     Dates: start: 202002
  2. RIBOCICLIB. [Suspect]
     Active Substance: RIBOCICLIB
     Indication: INVASIVE DUCTAL BREAST CARCINOMA
     Dosage: 600 MG
     Route: 065
     Dates: start: 201906, end: 202001
  3. ERIBULIN [Concomitant]
     Active Substance: ERIBULIN
     Indication: CHEMOTHERAPY
     Dosage: UNK
     Route: 065
     Dates: start: 202007
  4. LETROZOLE. [Suspect]
     Active Substance: LETROZOLE
     Indication: INVASIVE DUCTAL BREAST CARCINOMA
     Dosage: UNK (8 MONTHS)
     Route: 065
     Dates: start: 201906

REACTIONS (4)
  - Carcinoembryonic antigen increased [Unknown]
  - Leukopenia [Unknown]
  - Organ failure [Unknown]
  - Decreased appetite [Unknown]

NARRATIVE: CASE EVENT DATE: 202002
